FAERS Safety Report 6618862-6 (Version None)
Quarter: 2010Q1

REPORT INFORMATION
  Report Type: 
  Country: None (occurrence: None)
  Receive Date: 20100305
  Receipt Date: 20100305
  Transmission Date: 20100710
  Serious: Yes (Other)
  Sender: FDA-Public Use
  Company Number: None

PATIENT
  Age: 70 Year
  Sex: Male

DRUGS (1)
  1. CATAPRES-TTS-3 [Suspect]
     Indication: BLOOD PRESSURE MANAGEMENT
     Dosage: ONCE A WEEK

REACTIONS (3)
  - CEREBROVASCULAR ACCIDENT [None]
  - DEVICE INEFFECTIVE [None]
  - PRODUCT QUALITY ISSUE [None]
